FAERS Safety Report 17348242 (Version 2)
Quarter: 2020Q1

REPORT INFORMATION
  Report Type: Spontaneous
  Country: US (occurrence: US)
  Receive Date: 20200130
  Receipt Date: 20200211
  Transmission Date: 20200409
  Serious: No
  Sender: FDA-Public Use
  Company Number: US-PFIZER INC-2020037795

PATIENT
  Age: 54 Year
  Sex: Female

DRUGS (5)
  1. FLUCONAZOLE. [Suspect]
     Active Substance: FLUCONAZOLE
     Indication: MENINGITIS CRYPTOCOCCAL
     Dosage: 200 MG, 4X/DAY (4-200MG TABLETS A DAY)
     Route: 048
  2. ATORVASTATIN [Concomitant]
     Active Substance: ATORVASTATIN
     Dosage: 40 MG, 1X/DAY (ONCE AT BEDTIME)
     Route: 048
  3. FLUCONAZOLE. [Suspect]
     Active Substance: FLUCONAZOLE
     Indication: INFECTION
  4. METOCLOPRAMIDE. [Concomitant]
     Active Substance: METOCLOPRAMIDE
     Indication: NAUSEA
     Dosage: 10 MG, 4X/DAY (BEFORE MEALS AND ONE AT BEDTIME)
     Route: 048
  5. DIVALPROEX SODIUM. [Concomitant]
     Active Substance: DIVALPROEX SODIUM
     Indication: AFFECTIVE DISORDER
     Dosage: 500 MG, 2X/DAY
     Route: 048

REACTIONS (3)
  - Malaise [Unknown]
  - Product use issue [Unknown]
  - Off label use [Unknown]
